FAERS Safety Report 5516232-5 (Version None)
Quarter: 2007Q4

REPORT INFORMATION
  Report Type: 
  Country: None (occurrence: None)
  Receive Date: 20071114
  Receipt Date: 20070111
  Transmission Date: 20080405
  Serious: No
  Sender: FDA-Public Use
  Company Number: A0635112A

PATIENT
  Age: 46 Year
  Sex: Female

DRUGS (4)
  1. COMMIT [Suspect]
     Dates: start: 20061227
  2. NICORETTE [Suspect]
  3. NICODERM CQ [Suspect]
  4. NICODERM CQ [Suspect]

REACTIONS (6)
  - APPLICATION SITE EXFOLIATION [None]
  - APPLICATION SITE URTICARIA [None]
  - APPLICATION SITE WARMTH [None]
  - INTENTIONAL DRUG MISUSE [None]
  - MALAISE [None]
  - RETCHING [None]
